FAERS Safety Report 9565167 (Version 3)
Quarter: 2013Q4

REPORT INFORMATION
  Report Type: Spontaneous
  Country: JP (occurrence: JP)
  Receive Date: 20130930
  Receipt Date: 20131014
  Transmission Date: 20140711
  Serious: Yes (Other)
  Sender: FDA-Public Use
  Company Number: JP-PFIZER INC-2013276081

PATIENT
  Age: 27 Year
  Sex: 0

DRUGS (5)
  1. METHOTREXATE SODIUM [Suspect]
     Dosage: UNK
     Route: 041
  2. CISPLATIN [Suspect]
     Indication: TESTICULAR NEOPLASM
     Dosage: UNK
     Route: 041
  3. ETOPOSIDE [Suspect]
     Indication: TESTICULAR NEOPLASM
     Dosage: UNK
  4. VINCRISTINE SULFATE [Concomitant]
     Indication: TESTICULAR NEOPLASM
     Dosage: UNK
  5. PEPLOMYCIN [Concomitant]
     Indication: TESTICULAR NEOPLASM
     Dosage: UNK

REACTIONS (1)
  - Acute myeloid leukaemia [Recovering/Resolving]
